FAERS Safety Report 8354865-1 (Version None)
Quarter: 2012Q2

REPORT INFORMATION
  Report Type: 
  Country: None (occurrence: None)
  Receive Date: 20120511
  Receipt Date: 20120501
  Transmission Date: 20120825
  Serious: Yes (Other)
  Sender: FDA-Public Use
  Company Number: US-JNJFOC-20120503233

PATIENT
  Sex: Male
  Weight: 83.01 kg

DRUGS (4)
  1. ROWASA [Suspect]
     Indication: COLITIS ULCERATIVE
     Dates: start: 20120201
  2. MULTI-VITAMINS [Concomitant]
     Route: 048
     Dates: start: 20120201
  3. REMICADE [Suspect]
     Indication: COLITIS ULCERATIVE
     Route: 042
     Dates: start: 20070401, end: 20120101
  4. ALL OTHER THERAPEUTIC PRODUCTS [Concomitant]
     Indication: COLITIS ULCERATIVE
     Route: 048
     Dates: start: 20060101

REACTIONS (5)
  - DIPLOPIA [None]
  - CENTRAL NERVOUS SYSTEM LESION [None]
  - VERTIGO [None]
  - DEAFNESS UNILATERAL [None]
  - VITAMIN D DECREASED [None]
